FAERS Safety Report 11010221 (Version 1)
Quarter: 2015Q2

REPORT INFORMATION
  Report Type: Report from Study
  Country: FR (occurrence: FR)
  Receive Date: 20150410
  Receipt Date: 20150410
  Transmission Date: 20150821
  Serious: Yes (Other)
  Sender: FDA-Public Use
  Company Number: FR-GILEAD-2015-0140812

PATIENT
  Sex: Female

DRUGS (2)
  1. DACLATASVIR [Suspect]
     Active Substance: DACLATASVIR
     Indication: HEPATITIS C
     Dosage: UNK
     Route: 065
  2. SOFOSBUVIR [Suspect]
     Active Substance: SOFOSBUVIR
     Indication: HEPATITIS C
     Dosage: UNK
     Route: 065

REACTIONS (7)
  - Eye pain [Recovering/Resolving]
  - Autoimmune thyroiditis [Unknown]
  - Memory impairment [Unknown]
  - Cognitive disorder [Unknown]
  - Fatigue [Unknown]
  - Unevaluable event [Unknown]
  - Disturbance in attention [Unknown]
